FAERS Safety Report 26047873 (Version 1)
Quarter: 2025Q4

REPORT INFORMATION
  Report Type: Spontaneous
  Country: EU (occurrence: EU)
  Receive Date: 20251114
  Receipt Date: 20251114
  Transmission Date: 20260118
  Serious: Yes (Disabling)
  Sender: NOVO NORDISK
  Company Number: EU-NOVOPROD-1557520

PATIENT
  Age: 49 Year
  Sex: Male

DRUGS (1)
  1. SAXENDA [Suspect]
     Active Substance: LIRAGLUTIDE
     Indication: Obesity
     Dosage: UNK
     Dates: end: 20250430

REACTIONS (1)
  - Visual impairment [Unknown]

NARRATIVE: CASE EVENT DATE: 20250401
